FAERS Safety Report 9525303 (Version 1)
Quarter: 2013Q3

REPORT INFORMATION
  Report Type: Spontaneous
  Country: US (occurrence: US)
  Receive Date: 20130916
  Receipt Date: 20130916
  Transmission Date: 20140515
  Serious: No
  Sender: FDA-Public Use
  Company Number: US-VERTEX PHARMACEUTICALS INC-2013-009392

PATIENT
  Age: 66 Year
  Sex: Male
  Weight: 83.9 kg

DRUGS (16)
  1. INCIVEK [Suspect]
     Indication: HEPATITIS C
     Dosage: 750 MG, TID
     Route: 048
     Dates: start: 20130905
  2. PEGINTRON [Suspect]
     Indication: HEPATITIS C
     Dosage: 180 ?G, QW
     Dates: start: 20130905
  3. RIBAVIRIN [Suspect]
     Indication: HEPATITIS C
     Dosage: 600 MG, BID
     Route: 048
     Dates: start: 20130905
  4. GLYBURIDE [Concomitant]
     Dosage: UNK
  5. PLAVIX [Concomitant]
  6. ALBUTEROL [Concomitant]
     Dosage: UNK
  7. ASPIRIN [Concomitant]
     Dosage: UNK
  8. ATENOLOL [Concomitant]
     Dosage: UNK
  9. FISH OIL [Concomitant]
  10. POTASSIUM [Concomitant]
  11. METFORMIN [Concomitant]
  12. OMEPRAZOLE [Concomitant]
  13. SPIRIVA [Concomitant]
  14. SYMBICORT [Concomitant]
  15. THEOPHYLLINE [Concomitant]
  16. TRIAMTERENE [Concomitant]

REACTIONS (3)
  - Skin discomfort [Not Recovered/Not Resolved]
  - Rash [Not Recovered/Not Resolved]
  - Pruritus [Not Recovered/Not Resolved]
